FAERS Safety Report 5194968-6 (Version None)
Quarter: 2006Q4

REPORT INFORMATION
  Report Type: 
  Country: None (occurrence: None)
  Receive Date: 20061229
  Receipt Date: 20061221
  Transmission Date: 20070319
  Serious: Yes (Other)
  Sender: FDA-Public Use
  Company Number: 2006UW28335

PATIENT
  Age: 80 Year
  Sex: Female

DRUGS (3)
  1. CRESTOR [Suspect]
     Route: 048
     Dates: start: 20040101
  2. FOSOMAX [Concomitant]
  3. LOPRESSOR [Concomitant]

REACTIONS (1)
  - CEREBROVASCULAR ACCIDENT [None]
